FAERS Safety Report 16056355 (Version 1)
Quarter: 2019Q2

REPORT INFORMATION
  Report Type: Spontaneous
  Country: US (occurrence: US)
  Receive Date: 20190308
  Receipt Date: 20190308
  Transmission Date: 20190711
  Serious: Yes (Disabling)
  Sender: FDA-Public Use
  Company Number: None

PATIENT
  Age: 52 Year
  Sex: Male
  Weight: 66.83 kg

DRUGS (11)
  1. TRULICITY [Suspect]
     Active Substance: DULAGLUTIDE
     Indication: BLOOD GLUCOSE INCREASED
     Dosage: ?          QUANTITY:1 INJECTION(S);OTHER FREQUENCY:ONCE WEEKLY;?
     Route: 058
     Dates: start: 20190111, end: 20190301
  2. CARVEDILOL. [Concomitant]
     Active Substance: CARVEDILOL
  3. COQ10 [Concomitant]
     Active Substance: UBIDECARENONE
  4. OMEPRAZOLE. [Concomitant]
     Active Substance: OMEPRAZOLE
  5. ATORVASTATIN [Concomitant]
     Active Substance: ATORVASTATIN
  6. ELIQUIS [Concomitant]
     Active Substance: APIXABAN
  7. LOSARTIN [Concomitant]
     Active Substance: LOSARTAN
  8. VITAMIN D NOS [Concomitant]
     Active Substance: VITAMIN D NOS
  9. METFORMIN [Concomitant]
     Active Substance: METFORMIN HYDROCHLORIDE
  10. CPAP [Concomitant]
     Active Substance: DEVICE
  11. CALCIUM [Concomitant]
     Active Substance: CALCIUM

REACTIONS (10)
  - Diarrhoea [None]
  - Dehydration [None]
  - Eructation [None]
  - Fatigue [None]
  - Gastrooesophageal reflux disease [None]
  - Renal pain [None]
  - Abdominal distension [None]
  - Weight increased [None]
  - Lacrimation increased [None]
  - Chromaturia [None]

NARRATIVE: CASE EVENT DATE: 20190308
